FAERS Safety Report 16276561 (Version 2)
Quarter: 2019Q2

REPORT INFORMATION
  Report Type: Spontaneous
  Country: US (occurrence: US)
  Receive Date: 20190506
  Receipt Date: 20190610
  Transmission Date: 20190711
  Serious: Yes (Hospitalization, Other)
  Sender: FDA-Public Use
  Company Number: US-JNJFOC-20190443550

PATIENT
  Sex: Male

DRUGS (2)
  1. RISPERDAL [Suspect]
     Active Substance: RISPERIDONE
     Indication: PRODUCT USED FOR UNKNOWN INDICATION
     Route: 048
  2. RISPERDAL [Suspect]
     Active Substance: RISPERIDONE
     Indication: PRODUCT USED FOR UNKNOWN INDICATION
     Route: 065

REACTIONS (12)
  - Emotional disorder [Not Recovered/Not Resolved]
  - Therapy cessation [Unknown]
  - Chest pain [Unknown]
  - Neck pain [Not Recovered/Not Resolved]
  - Brain injury [Unknown]
  - Stress [Unknown]
  - Hospitalisation [Unknown]
  - Haematochezia [Not Recovered/Not Resolved]
  - Infection [Unknown]
  - Abdominal pain upper [Unknown]
  - Pain in extremity [Unknown]
  - Haemoptysis [Unknown]

NARRATIVE: CASE EVENT DATE: 20190429
